FAERS Safety Report 26177305 (Version 1)
Quarter: 2025Q4

REPORT INFORMATION
  Report Type: Spontaneous
  Country: US (occurrence: US)
  Receive Date: 20251219
  Receipt Date: 20251219
  Transmission Date: 20260117
  Serious: No
  Sender: RANBAXY
  Company Number: US-SUN PHARMACEUTICAL INDUSTRIES LTD-2025R1-528300

PATIENT

DRUGS (1)
  1. LIDOCAINE [Suspect]
     Active Substance: LIDOCAINE
     Indication: Migraine
     Dosage: 2 TO 4 PUMPS, 3 TIMES A DAY AS NEEDED
     Route: 045

REACTIONS (1)
  - Product prescribing error [Unknown]
